FAERS Safety Report 5442483-4 (Version None)
Quarter: 2007Q3

REPORT INFORMATION
  Report Type: 
  Country: None (occurrence: None)
  Receive Date: 20070829
  Receipt Date: 20070821
  Transmission Date: 20080115
  Serious: Yes (Death)
  Sender: FDA-Public Use
  Company Number: ABOHS-07-0632

PATIENT
  Age: 56 Year
  Sex: Female
  Weight: 65 kg

DRUGS (4)
  1. ABRAXANE [Suspect]
     Indication: BREAST CANCER METASTATIC
     Dosage: INTRAVENOUS
     Route: 042
     Dates: start: 20060901, end: 20070508
  2. ARIMIDEX [Suspect]
     Indication: BREAST CANCER METASTATIC
  3. GEMZAR [Concomitant]
  4. ADRIAMYCIN PFS [Concomitant]

REACTIONS (9)
  - ASCITES [None]
  - BREATH SOUNDS ABNORMAL [None]
  - HEPATIC VEIN THROMBOSIS [None]
  - HEPATOSPLENOMEGALY [None]
  - INTERNATIONAL NORMALISED RATIO INCREASED [None]
  - MALIGNANT NEOPLASM PROGRESSION [None]
  - METASTASES TO LIVER [None]
  - OEDEMA PERIPHERAL [None]
  - PLEURAL EFFUSION [None]
